FAERS Safety Report 8831715 (Version 1)
Quarter: 2012Q4

REPORT INFORMATION
  Report Type: 
  Country: US (occurrence: US)
  Receive Date: 20121009
  Receipt Date: 20121009
  Transmission Date: 20130627
  Serious: Yes (Other)
  Sender: FDA-Public Use
  Company Number: US-ROCHE-1136961

PATIENT
  Sex: Female

DRUGS (2)
  1. RITUXAN [Suspect]
     Indication: IDIOPATHIC THROMBOCYTOPENIC PURPURA
     Route: 042
  2. RITUXAN [Suspect]
     Indication: OFF LABEL USE

REACTIONS (4)
  - Contusion [Unknown]
  - Pyrexia [Unknown]
  - Hyperhidrosis [Unknown]
  - Platelet count decreased [Unknown]
